FAERS Safety Report 5064991-0 (Version None)
Quarter: 2006Q3

REPORT INFORMATION
  Report Type: 
  Country: None (occurrence: None)
  Receive Date: 20060728
  Receipt Date: 20060721
  Transmission Date: 20061208
  Serious: Yes (Death)
  Sender: FDA-Public Use
  Company Number: GR-ABBOTT-06P-066-0338515-00

PATIENT
  Age: 51 Year
  Sex: Male
  Weight: 160 kg

DRUGS (5)
  1. REDUCTIL 10MG [Suspect]
     Indication: OBESITY
     Route: 048
  2. ACETYLSALICYLIC ACID SRT [Concomitant]
     Indication: CORONARY ARTERY DISEASE
     Route: 048
  3. MAXEPA [Concomitant]
     Indication: HYPERLIPIDAEMIA
     Route: 048
  4. ZOCOR [Concomitant]
     Indication: HYPERCHOLESTEROLAEMIA
     Route: 048
  5. PERINDOPRIL [Concomitant]
     Indication: HYPERTENSION
     Route: 048

REACTIONS (1)
  - SUDDEN DEATH [None]
